FAERS Safety Report 5256942-0 (Version None)
Quarter: 2007Q1

REPORT INFORMATION
  Report Type: 
  Country: None (occurrence: None)
  Receive Date: 20070305
  Receipt Date: 20070305
  Transmission Date: 20070707
  Serious: Yes (Disabling)
  Sender: FDA-Public Use
  Company Number: None

PATIENT
  Sex: Female

DRUGS (1)
  1. AMIKACIN [Suspect]
     Indication: WOUND INFECTION
     Dosage: 500 MG AFTER DIALYSIS IV
     Route: 042
     Dates: start: 20070209, end: 20070227

REACTIONS (1)
  - DEAFNESS [None]
